FAERS Safety Report 13195307 (Version 2)
Quarter: 2017Q1

REPORT INFORMATION
  Report Type: Spontaneous
  Country: FR (occurrence: FR)
  Receive Date: 20170208
  Receipt Date: 20170330
  Transmission Date: 20170428
  Serious: Yes (Disabling, Other)
  Sender: FDA-Public Use
  Company Number: FR-CONCORDIA PHARMACEUTICALS INC.-GSH201702-000806

PATIENT
  Sex: Female

DRUGS (2)
  1. METHOTREXATE. [Concomitant]
     Active Substance: METHOTREXATE
     Indication: SYSTEMIC LUPUS ERYTHEMATOSUS
     Dates: start: 1998, end: 2013
  2. HYDROXYCHLOROQUINE [Suspect]
     Active Substance: HYDROXYCHLOROQUINE
     Indication: SYSTEMIC LUPUS ERYTHEMATOSUS
     Route: 065
     Dates: start: 201307, end: 201311

REACTIONS (5)
  - Deafness bilateral [Not Recovered/Not Resolved]
  - Acute vestibular syndrome [Not Recovered/Not Resolved]
  - Neuritis [Not Recovered/Not Resolved]
  - Deafness [Not Recovered/Not Resolved]
  - Audiogram abnormal [Not Recovered/Not Resolved]

NARRATIVE: CASE EVENT DATE: 2013
